FAERS Safety Report 21611676 (Version 1)
Quarter: 2022Q4

REPORT INFORMATION
  Report Type: Report from Study
  Country: BR (occurrence: BR)
  Receive Date: 20221117
  Receipt Date: 20221117
  Transmission Date: 20230112
  Serious: Yes (Other)
  Sender: FDA-Public Use
  Company Number: BR-JNJFOC-20221122671

PATIENT
  Age: 60 Year
  Sex: Female
  Weight: 60 kg

DRUGS (3)
  1. REMICADE [Suspect]
     Active Substance: INFLIXIMAB
     Indication: Crohn^s disease
     Route: 041
     Dates: start: 20190224, end: 20220723
  2. REMICADE [Suspect]
     Active Substance: INFLIXIMAB
     Route: 041
  3. PREDNISONE [Suspect]
     Active Substance: PREDNISONE
     Indication: Suspected COVID-19
     Route: 065

REACTIONS (5)
  - Crohn^s disease [Unknown]
  - COVID-19 [Unknown]
  - Weight decreased [Unknown]
  - Abnormal weight gain [Unknown]
  - Off label use [Unknown]

NARRATIVE: CASE EVENT DATE: 20220701
